FAERS Safety Report 4438424-9 (Version None)
Quarter: 2004Q3

REPORT INFORMATION
  Report Type: 
  Country: None (occurrence: None)
  Receive Date: 20040831
  Receipt Date: 20040420
  Transmission Date: 20050211
  Serious: Yes (Other)
  Sender: FDA-Public Use
  Company Number: US-GLAXOSMITHKLINE-A0507659A

PATIENT
  Age: 30 Year
  Sex: Female
  Weight: 52.7 kg

DRUGS (8)
  1. WELLBUTRIN [Suspect]
     Indication: DRUG USE FOR UNKNOWN INDICATION
     Route: 048
     Dates: start: 20040226, end: 20040324
  2. ADVAIR DISKUS 100/50 [Concomitant]
  3. BECONASE [Concomitant]
  4. SINGULAIR [Concomitant]
  5. ULTRAM [Concomitant]
  6. MAXALT [Concomitant]
  7. VIOXX [Concomitant]
  8. ALLEGRA-D [Concomitant]

REACTIONS (3)
  - AMNESIA [None]
  - GRAND MAL CONVULSION [None]
  - TONGUE BITING [None]
